FAERS Safety Report 13754872 (Version 5)
Quarter: 2017Q4

REPORT INFORMATION
  Report Type: Report from Study
  Country: US (occurrence: US)
  Receive Date: 20170714
  Receipt Date: 20171226
  Transmission Date: 20180320
  Serious: Yes (Hospitalization, Other)
  Sender: FDA-Public Use
  Company Number: US-JNJFOC-20170709648

PATIENT
  Age: 77 Year
  Sex: Female
  Weight: 64 kg

DRUGS (6)
  1. IMBRUVICA [Suspect]
     Active Substance: IBRUTINIB
     Indication: CHRONIC LYMPHOCYTIC LEUKAEMIA
     Route: 048
     Dates: start: 20170612, end: 2017
  2. MELATONIN [Concomitant]
     Active Substance: MELATONIN
     Indication: SOMNOLENCE
  3. IMBRUVICA [Suspect]
     Active Substance: IBRUTINIB
     Indication: CHRONIC LYMPHOCYTIC LEUKAEMIA
     Route: 048
     Dates: start: 20170904
  4. IMBRUVICA [Suspect]
     Active Substance: IBRUTINIB
     Indication: CHRONIC LYMPHOCYTIC LEUKAEMIA
     Route: 048
     Dates: start: 201705, end: 20170619
  5. IMBRUVICA [Suspect]
     Active Substance: IBRUTINIB
     Indication: CHRONIC LYMPHOCYTIC LEUKAEMIA
     Route: 048
     Dates: start: 20170701, end: 20170802
  6. IBUPROFEN. [Concomitant]
     Active Substance: IBUPROFEN
     Indication: PAIN
     Route: 048
     Dates: start: 201705, end: 20170619

REACTIONS (14)
  - Lymphocyte count increased [Unknown]
  - Peripheral swelling [Recovered/Resolved]
  - Epistaxis [Recovered/Resolved]
  - Platelet count decreased [Unknown]
  - Erosive oesophagitis [Recovered/Resolved]
  - Ulcer haemorrhage [Recovered/Resolved]
  - Alanine aminotransferase increased [Recovered/Resolved]
  - Haemoglobin decreased [Recovered/Resolved]
  - White blood cell count increased [Recovering/Resolving]
  - Subcutaneous haematoma [Recovered/Resolved]
  - Urticaria [Recovering/Resolving]
  - Aspartate aminotransferase increased [Not Recovered/Not Resolved]
  - Joint swelling [Recovered/Resolved]
  - Myalgia [Recovered/Resolved]

NARRATIVE: CASE EVENT DATE: 20170618
